FAERS Safety Report 5015626-4 (Version None)
Quarter: 2006Q2

REPORT INFORMATION
  Report Type: 
  Country: None (occurrence: None)
  Receive Date: 20060525
  Receipt Date: 20060511
  Transmission Date: 20061013
  Serious: Yes (Other)
  Sender: FDA-Public Use
  Company Number: PHEH2006US06252

PATIENT
  Age: 62 Year
  Sex: Female

DRUGS (7)
  1. VISUDYNE [Suspect]
     Indication: MACULAR DEGENERATION
     Dates: start: 20030825, end: 20030825
  2. PRILOSEC [Concomitant]
  3. TETRACYCLINE [Concomitant]
  4. BELLAMINE [Concomitant]
  5. HYDROCHLOROTHIAZIDE [Concomitant]
  6. CALCIUM GLUCONATE [Concomitant]
  7. VAGIFEM [Concomitant]

REACTIONS (1)
  - ANOSMIA [None]
